FAERS Safety Report 7403872-1 (Version None)
Quarter: 2011Q2

REPORT INFORMATION
  Report Type: 
  Country: None (occurrence: None)
  Receive Date: 20110408
  Receipt Date: 20110329
  Transmission Date: 20111010
  Serious: Yes (Other)
  Sender: FDA-Public Use
  Company Number: US-BRACCO-005584

PATIENT
  Sex: Female

DRUGS (18)
  1. CONTRAST MEDIA [Suspect]
     Indication: NUCLEAR MAGNETIC RESONANCE IMAGING
     Route: 065
     Dates: start: 20060524, end: 20060524
  2. MS CONTIN [Concomitant]
  3. MAGNEVIST [Suspect]
     Indication: NUCLEAR MAGNETIC RESONANCE IMAGING
     Route: 065
  4. PROHANCE [Suspect]
     Indication: NUCLEAR MAGNETIC RESONANCE IMAGING
     Route: 065
     Dates: start: 20061020, end: 20061020
  5. CIPRO [Concomitant]
  6. CONTRAST MEDIA [Suspect]
     Route: 042
     Dates: start: 20020520, end: 20020520
  7. PROHANCE [Suspect]
     Route: 042
     Dates: start: 20030114, end: 20030114
  8. MAGNEVIST [Suspect]
     Route: 065
     Dates: start: 20040709, end: 20040709
  9. LORCET-HD [Concomitant]
  10. PERCOCET [Concomitant]
  11. DOXYCYCLINE [Concomitant]
  12. PANTOPRAZOLE [Concomitant]
  13. AMBIEN [Concomitant]
  14. ANTIVERT [Concomitant]
  15. ANTIGLAUCOMA PREPARATIONS AND MIOTICS [Concomitant]
  16. EFFEXOR [Concomitant]
  17. CONTRAST MEDIA [Suspect]
     Route: 065
     Dates: start: 20010420, end: 20010420
  18. CELEXA [Concomitant]

REACTIONS (1)
  - NEPHROGENIC SYSTEMIC FIBROSIS [None]
